FAERS Safety Report 21768176 (Version 1)
Quarter: 2022Q4

REPORT INFORMATION
  Report Type: Spontaneous
  Country: US (occurrence: None)
  Receive Date: 20221222
  Receipt Date: 20221222
  Transmission Date: 20230113
  Serious: Yes (Hospitalization)
  Sender: FDA-Public Use
  Company Number: None

PATIENT
  Age: 53 Year
  Sex: Female

DRUGS (1)
  1. ZOMETA [Suspect]
     Active Substance: ZOLEDRONIC ACID
     Indication: Breast cancer
     Dosage: OTHER FREQUENCY : EVERY 12 WEEKS;?
     Route: 042
     Dates: start: 20170101, end: 20220501

REACTIONS (3)
  - Arthralgia [None]
  - Femur fracture [None]
  - Injury [None]

NARRATIVE: CASE EVENT DATE: 20220805
